FAERS Safety Report 10099979 (Version 4)
Quarter: 2017Q1

REPORT INFORMATION
  Report Type: Spontaneous
  Country: JP (occurrence: JP)
  Receive Date: 20140423
  Receipt Date: 20170221
  Transmission Date: 20170428
  Serious: Yes (Death, Other)
  Sender: FDA-Public Use
  Company Number: JP-BRISTOL-MYERS SQUIBB COMPANY-20657763

PATIENT
  Age: 84 Year
  Sex: Male
  Weight: 65 kg

DRUGS (8)
  1. DECADRON [Concomitant]
     Active Substance: DEXAMETHASONE
     Indication: PRODUCT USED FOR UNKNOWN INDICATION
     Dosage: 4.95 MG, QD
     Route: 041
     Dates: start: 20140406, end: 20140408
  2. LASIX [Concomitant]
     Active Substance: FUROSEMIDE
     Indication: PRODUCT USED FOR UNKNOWN INDICATION
     Dosage: 10 MG, QD
     Route: 042
     Dates: start: 20140406, end: 20140407
  3. AMPICILLIN SODIUM + SULBACTAM SODIUM [Concomitant]
     Indication: PRODUCT USED FOR UNKNOWN INDICATION
     Dosage: INJ
     Route: 041
     Dates: start: 20140331, end: 20140405
  4. MAINTATE [Concomitant]
     Active Substance: BISOPROLOL FUMARATE
     Indication: PNEUMONIA BACTERIAL
     Dosage: 2.5 MG, QD
     Route: 048
     Dates: start: 20140226, end: 20140408
  5. ELIQUIS [Suspect]
     Active Substance: APIXABAN
     Indication: THROMBOSIS PROPHYLAXIS
     Dosage: TABS  10 MG
     Route: 048
     Dates: start: 20140212, end: 20140408
  6. TAMBOCOR [Concomitant]
     Active Substance: FLECAINIDE ACETATE
     Indication: PNEUMONIA BACTERIAL
     Dosage: 200 MG, BID
     Route: 048
     Dates: start: 20140226, end: 20140408
  7. MAGLAX [Concomitant]
     Active Substance: MAGNESIUM OXIDE
     Indication: PNEUMONIA BACTERIAL
     Dosage: 600 MG, BID
     Route: 048
     Dates: start: 20140226, end: 20140408
  8. MEROPENEM. [Concomitant]
     Active Substance: MEROPENEM
     Indication: PRODUCT USED FOR UNKNOWN INDICATION
     Dosage: .5 G, TID
     Route: 041
     Dates: start: 20140405, end: 20140409

REACTIONS (3)
  - Lung neoplasm malignant [Fatal]
  - Pneumonia bacterial [Unknown]
  - Abdominal pain [Unknown]

NARRATIVE: CASE EVENT DATE: 20140331
